FAERS Safety Report 19039922 (Version 3)
Quarter: 2021Q4

REPORT INFORMATION
  Report Type: Report from Study
  Country: CO (occurrence: CO)
  Receive Date: 20210322
  Receipt Date: 20211201
  Transmission Date: 20220303
  Serious: Yes (Other)
  Sender: FDA-Public Use
  Company Number: CO-ABBVIE-21K-036-3825521-00

PATIENT
  Sex: Male
  Weight: 80 kg

DRUGS (5)
  1. HUMIRA [Suspect]
     Active Substance: ADALIMUMAB
     Indication: Product used for unknown indication
     Route: 058
     Dates: start: 20151111
  2. HUMIRA [Suspect]
     Active Substance: ADALIMUMAB
     Indication: Psoriatic arthropathy
     Route: 058
     Dates: end: 20210224
  3. HUMIRA [Suspect]
     Active Substance: ADALIMUMAB
     Route: 058
     Dates: start: 2021, end: 20211015
  4. VITAMIN C [Concomitant]
     Active Substance: ASCORBIC ACID
     Indication: Influenza like illness
     Route: 048
  5. LORATADINE [Concomitant]
     Active Substance: LORATADINE
     Indication: Influenza like illness
     Route: 048

REACTIONS (15)
  - Neoplasm [Recovered/Resolved]
  - Head injury [Recovered/Resolved]
  - Weight increased [Recovering/Resolving]
  - Hyperphagia [Unknown]
  - Mobility decreased [Recovered/Resolved]
  - Gait disturbance [Not Recovered/Not Resolved]
  - Joint injury [Recovered/Resolved]
  - Joint injury [Not Recovered/Not Resolved]
  - Joint injury [Recovered/Resolved]
  - Inflammation [Not Recovered/Not Resolved]
  - Nasal congestion [Recovering/Resolving]
  - Fall [Recovered/Resolved]
  - Fall [Not Recovered/Not Resolved]
  - Influenza like illness [Recovered/Resolved]
  - Influenza [Recovered/Resolved]

NARRATIVE: CASE EVENT DATE: 20200101
